FAERS Safety Report 12993255 (Version 1)
Quarter: 2016Q4

REPORT INFORMATION
  Report Type: Spontaneous
  Country: US (occurrence: US)
  Receive Date: 20161201
  Receipt Date: 20161201
  Transmission Date: 20170207
  Serious: No
  Sender: FDA-Public Use
  Company Number: None

PATIENT
  Age: 54 Year
  Sex: Female

DRUGS (1)
  1. HUMIRA [Suspect]
     Active Substance: ADALIMUMAB
     Indication: COLITIS ULCERATIVE
     Dosage: 160MG DAY 180MG DAY 15, DAY 1 AND DAY 15 SUB Q
     Route: 058
     Dates: start: 20161107, end: 20161125

REACTIONS (2)
  - Depression [None]
  - Crohn^s disease [None]

NARRATIVE: CASE EVENT DATE: 20161115
